FAERS Safety Report 5873381-X (Version None)
Quarter: 2008Q3

REPORT INFORMATION
  Report Type: 
  Country: None (occurrence: None)
  Receive Date: 20080908
  Receipt Date: 20080828
  Transmission Date: 20090109
  Serious: Yes (Life-Threatening)
  Sender: FDA-Public Use
  Company Number: DK-JNJFOC-20080806285

PATIENT
  Sex: Female

DRUGS (1)
  1. REMICADE [Suspect]
     Indication: RHEUMATOID ARTHRITIS
     Dosage: WEEK 0+2+6+8
     Route: 042

REACTIONS (3)
  - MULTI-ORGAN FAILURE [None]
  - PNEUMONIA LEGIONELLA [None]
  - POLYNEUROPATHY [None]
